FAERS Safety Report 4588003-8 (Version None)
Quarter: 2005Q1

REPORT INFORMATION
  Report Type: 
  Country: None (occurrence: None)
  Receive Date: 20050215
  Receipt Date: 20050202
  Transmission Date: 20050727
  Serious: Yes (Other)
  Sender: FDA-Public Use
  Company Number: 2005024957

PATIENT
  Age: 75 Year
  Sex: Male

DRUGS (2)
  1. CELEBREX [Suspect]
     Indication: ARTHRITIS
     Dosage: 200 MG (200 MG, 1 IN 1 D)
  2. CELEBREX [Suspect]
     Indication: ARTHROPATHY
     Dosage: 200 MG (200 MG, 1 IN 1 D)

REACTIONS (4)
  - JOINT CREPITATION [None]
  - PAIN [None]
  - PROSTATE CANCER [None]
  - WEIGHT INCREASED [None]
